FAERS Safety Report 10266937 (Version 1)
Quarter: 2014Q2

REPORT INFORMATION
  Report Type: Report from Study
  Country: US (occurrence: US)
  Receive Date: 20140630
  Receipt Date: 20140630
  Transmission Date: 20141212
  Serious: Yes (Hospitalization)
  Sender: FDA-Public Use
  Company Number: US-BIOGENIDEC-2014BI062765

PATIENT
  Age: 71 Year
  Sex: Female

DRUGS (1)
  1. TYSABRI [Suspect]
     Indication: MULTIPLE SCLEROSIS
     Route: 042
     Dates: start: 20090316

REACTIONS (10)
  - Abscess [Recovered/Resolved]
  - Limb discomfort [Not Recovered/Not Resolved]
  - Balance disorder [Recovered/Resolved]
  - Pain in extremity [Recovered/Resolved]
  - Dyskinesia [Recovered/Resolved]
  - Cognitive disorder [Not Recovered/Not Resolved]
  - Anxiety [Not Recovered/Not Resolved]
  - Emotional distress [Not Recovered/Not Resolved]
  - General symptom [Recovered/Resolved]
  - Fatigue [Not Recovered/Not Resolved]
